FAERS Safety Report 18776127 (Version 3)
Quarter: 2021Q2

REPORT INFORMATION
  Report Type: Spontaneous
  Country: ES (occurrence: ES)
  Receive Date: 20210122
  Receipt Date: 20210407
  Transmission Date: 20210717
  Serious: Yes (Life-Threatening, Hospitalization)
  Sender: FDA-Public Use
  Company Number: NVSC2021ES010360

PATIENT
  Age: 74 Year
  Sex: Male
  Weight: 76 kg

DRUGS (14)
  1. 5?FLUOROURACIL SANDOZ [Suspect]
     Active Substance: FLUOROURACIL
     Indication: OESOPHAGEAL CARCINOMA
     Dosage: 4680 MG, CYCLIC (ONCE IN EVERY TWO WEEKS)
     Route: 042
     Dates: start: 20200722
  2. CALCIUM FOLINATE [Suspect]
     Active Substance: LEUCOVORIN CALCIUM
     Indication: OESOPHAGEAL CARCINOMA
     Dosage: 720 MG, CYCLIC(ONCE IN EVERY TWO WEEKS)
     Route: 042
     Dates: start: 20200722
  3. DOCETAXEL. [Suspect]
     Active Substance: DOCETAXEL
     Indication: OESOPHAGEAL CARCINOMA
     Dosage: 90 MG, CYCLIC (ONCE IN EVERY TWO WEEKS)
     Route: 042
     Dates: start: 20201229
  4. IRBESARTAN. [Concomitant]
     Active Substance: IRBESARTAN
     Indication: HYPERTENSION
     Dosage: 75 MG
     Route: 065
     Dates: start: 20200701
  5. SITAGLIPTINE [Concomitant]
     Active Substance: SITAGLIPTIN
     Indication: DIABETES MELLITUS
     Dosage: 50 MG
     Route: 065
     Dates: start: 20040101
  6. OXALIPLATIN. [Suspect]
     Active Substance: OXALIPLATIN
     Indication: GASTRIC CANCER
     Dosage: 150 MG, CYCLIC (ONCE IN EVERY TWO WEEKS)
     Route: 042
     Dates: start: 20200722
  7. 5?FLUOROURACIL SANDOZ [Suspect]
     Active Substance: FLUOROURACIL
     Indication: GASTRIC CANCER
     Dosage: 4680 MG, CYCLIC (ONCE IN EVERY TWO WEEKS)
     Route: 042
     Dates: start: 20201230
  8. AVELUMAB [Concomitant]
     Active Substance: AVELUMAB
     Indication: GASTRIC CANCER
     Dosage: 720 MG, CYCLIC/ (ONCE IN EVERY TWO WEEKS)
     Route: 042
     Dates: start: 20201229
  9. METFORMINE [Concomitant]
     Active Substance: METFORMIN HYDROCHLORIDE
     Indication: DIABETES MELLITUS
     Dosage: 1000 MG
     Route: 065
     Dates: start: 20040101
  10. VESOMNI [Concomitant]
     Active Substance: SOLIFENACIN\TAMSULOSIN
     Indication: BENIGN PROSTATIC HYPERPLASIA
     Dosage: 6 MG
     Route: 065
     Dates: start: 20010101
  11. OXALIPLATIN. [Suspect]
     Active Substance: OXALIPLATIN
     Indication: OESOPHAGEAL CARCINOMA
     Dosage: 150 MG, CYCLIC (ONCE IN EVERY TWO WEEKS)
     Route: 042
     Dates: start: 20201229
  12. CALCIUM FOLINATE [Suspect]
     Active Substance: LEUCOVORIN CALCIUM
     Indication: GASTRIC CANCER
     Dosage: 720 MG, CYCLIC(ONCE IN EVERY TWO WEEKS)
     Route: 042
     Dates: start: 20201229
  13. AVELUMAB [Concomitant]
     Active Substance: AVELUMAB
     Indication: OESOPHAGEAL CARCINOMA
     Dosage: 720 MG, CYCLIC (720 MG, Q2WEEK (ONCE IN EVERY TWO WEEKS)
     Route: 042
     Dates: start: 20200722
  14. DOCETAXEL. [Suspect]
     Active Substance: DOCETAXEL
     Indication: GASTRIC CANCER
     Dosage: 90 MG, CYCLIC (ONCE IN EVERY TWO WEEKS)
     Route: 042
     Dates: start: 20200722

REACTIONS (1)
  - Septic shock [Recovered/Resolved]

NARRATIVE: CASE EVENT DATE: 20201230
